FAERS Safety Report 11825181 (Version 1)
Quarter: 2015Q4

REPORT INFORMATION
  Report Type: Report from Study
  Country: AT (occurrence: AT)
  Receive Date: 20151211
  Receipt Date: 20151211
  Transmission Date: 20160305
  Serious: Yes (Death, Other)
  Sender: FDA-Public Use
  Company Number: AT-ASTRAZENECA-2015SF20164

PATIENT
  Age: 22190 Day
  Sex: Female
  Weight: 58 kg

DRUGS (7)
  1. FORTECORTIN [Concomitant]
     Active Substance: DEXAMETHASONE
     Indication: METASTASES TO CENTRAL NERVOUS SYSTEM
     Dates: start: 20151021
  2. PANTOLOC [Concomitant]
     Active Substance: PANTOPRAZOLE SODIUM
     Route: 048
     Dates: end: 20151102
  3. FORTECORTIN [Concomitant]
     Active Substance: DEXAMETHASONE
     Indication: METASTASES TO CENTRAL NERVOUS SYSTEM
  4. MINOCYCLINE [Concomitant]
     Active Substance: MINOCYCLINE\MINOCYCLINE HYDROCHLORIDE
     Indication: SKIN DISORDER
  5. PIPERACILLIN/TAZOBACTUM [Concomitant]
     Active Substance: PIPERACILLIN SODIUM\TAZOBACTAM SODIUM
     Indication: C-REACTIVE PROTEIN INCREASED
     Dosage: 4/0,5 G, THREE TIMES A DAY
     Dates: start: 20151125
  6. TAGRISSO [Suspect]
     Active Substance: OSIMERTINIB
     Indication: NON-SMALL CELL LUNG CANCER
     Route: 048
     Dates: start: 20151114, end: 20151124
  7. PIPERACILLIN/TAZOBACTUM [Concomitant]
     Active Substance: PIPERACILLIN SODIUM\TAZOBACTAM SODIUM
     Indication: LUNG INFILTRATION
     Dosage: 4/0,5 G, THREE TIMES A DAY
     Dates: start: 20151125

REACTIONS (2)
  - Thrombocytopenia [Fatal]
  - Anti-platelet antibody [Unknown]

NARRATIVE: CASE EVENT DATE: 20151123
